FAERS Safety Report 21622413 (Version 2)
Quarter: 2022Q4

REPORT INFORMATION
  Report Type: Report from Study
  Country: IN (occurrence: IN)
  Receive Date: 20221121
  Receipt Date: 20221228
  Transmission Date: 20230113
  Serious: Yes (Other)
  Sender: FDA-Public Use
  Company Number: IN-002147023-NVSC2022IN260580

PATIENT
  Age: 60 Year
  Sex: Female
  Weight: 76 kg

DRUGS (13)
  1. SECUKINUMAB [Suspect]
     Active Substance: SECUKINUMAB
     Indication: Ankylosing spondylitis
     Dosage: 150 MG, QMO
     Route: 058
     Dates: start: 20190420
  2. SECUKINUMAB [Suspect]
     Active Substance: SECUKINUMAB
     Indication: Spondyloarthropathy
     Dosage: 1 DOSAGE FORM, QMO (FOR 6 MONTHS)
     Route: 065
     Dates: start: 20220323
  3. SECUKINUMAB [Suspect]
     Active Substance: SECUKINUMAB
     Dosage: 150 MG, QMO
     Route: 058
     Dates: start: 20220905
  4. SULFASALAZINE [Concomitant]
     Active Substance: SULFASALAZINE
     Indication: Product used for unknown indication
     Dosage: 1 DOSAGE FORM, QD (AT BEDTIME) FOR 6 MONTHS)
     Route: 065
     Dates: start: 20220323
  5. SULFASALAZINE [Concomitant]
     Active Substance: SULFASALAZINE
     Dosage: 1 DOSAGE FORM, QD (AT BEDTIME) FOR 60 DAYS)
     Route: 048
     Dates: start: 20221221
  6. CALCIUM CARBONATE\CHOLECALCIFEROL [Concomitant]
     Active Substance: CALCIUM CARBONATE\CHOLECALCIFEROL
     Indication: Product used for unknown indication
     Dosage: 1 DOSAGE FORM, QD (AT BEDTIME) FOR 90 DAYS)
     Route: 065
     Dates: start: 20220323
  7. CALCIUM CARBONATE\CHOLECALCIFEROL [Concomitant]
     Active Substance: CALCIUM CARBONATE\CHOLECALCIFEROL
     Dosage: 1 DOSAGE FORM, QD (AT BEDTIME) FOR 90 DAYS)
     Route: 048
     Dates: start: 20221221
  8. ETOSHINE [Concomitant]
     Indication: Product used for unknown indication
     Dosage: 1 DOSAGE FORM, PRN (FOR 5 DAY)
     Route: 065
     Dates: start: 20220323
  9. ETOSHINE [Concomitant]
     Dosage: 1 DOSAGE FORM, QD (FOR 7 WEEKS)
     Route: 048
     Dates: start: 20221221
  10. RABLET-D [Concomitant]
     Indication: Product used for unknown indication
     Dosage: 1 DOSAGE FORM, QD (BEFORE BREAKFAST FOR 7 WEEKS)
     Route: 048
     Dates: start: 20221221
  11. MYOTOP [Concomitant]
     Indication: Product used for unknown indication
     Dosage: 1 DOSAGE FORM, QD (AT BEDTIME FOR 3 WEEKS)
     Route: 048
     Dates: start: 20221221
  12. E COD PLUS [Concomitant]
     Indication: Product used for unknown indication
     Dosage: 1 DOSAGE FORM, QD (AT BEDTIME FOR 30 DAYS)
     Route: 048
     Dates: start: 20221221
  13. TRIGABANTIN [Concomitant]
     Indication: Product used for unknown indication
     Dosage: 1 DOSAGE FORM, QD (AT BEDTIME FOR 30 DAYS)
     Route: 048
     Dates: start: 20221221

REACTIONS (11)
  - Type 2 diabetes mellitus [Unknown]
  - Hypothyroidism [Unknown]
  - Blood pressure increased [Unknown]
  - Haemoglobin decreased [Unknown]
  - Red blood cell sedimentation rate increased [Unknown]
  - Spondyloarthropathy [Unknown]
  - Osteopenia [Unknown]
  - Sacroiliitis [Unknown]
  - Hypertension [Unknown]
  - Weight decreased [Unknown]
  - Off label use [Unknown]

NARRATIVE: CASE EVENT DATE: 20190420
